FAERS Safety Report 8222278-9 (Version None)
Quarter: 2012Q1

REPORT INFORMATION
  Report Type: 
  Country: None (occurrence: None)
  Receive Date: 20120320
  Receipt Date: 20120314
  Transmission Date: 20120608
  Serious: Yes (Death, Hospitalization)
  Sender: FDA-Public Use
  Company Number: US-GLAXOSMITHKLINE-A0970404A

PATIENT
  Age: 65 Year
  Sex: Female
  Weight: 51 kg

DRUGS (8)
  1. FLOLAN [Suspect]
     Indication: PULMONARY ARTERIAL HYPERTENSION
     Dosage: 27.24NGKM UNKNOWN
     Route: 042
     Dates: start: 20110419
  2. TYLENOL [Concomitant]
  3. MULTI-VITAMIN [Concomitant]
  4. FUROSEMIDE [Concomitant]
     Dosage: 40MG TWICE PER DAY
  5. TRIAMCINOLONE [Concomitant]
  6. TRACLEER [Concomitant]
     Dosage: 125MG TWICE PER DAY
  7. POTASSIUM [Concomitant]
     Dosage: 20MEQ TWICE PER DAY
  8. CLARITIN [Concomitant]
     Dosage: 10MG AS REQUIRED

REACTIONS (10)
  - DEVICE RELATED INFECTION [None]
  - BACK PAIN [None]
  - DYSPNOEA [None]
  - INTERVERTEBRAL DISC DISORDER [None]
  - STAPHYLOCOCCAL SEPSIS [None]
  - HYPOXIA [None]
  - DEATH [None]
  - ABSCESS [None]
  - CARDIAC ARREST [None]
  - SEPSIS [None]
